FAERS Safety Report 25419609 (Version 3)
Quarter: 2025Q3

REPORT INFORMATION
  Report Type: Spontaneous
  Country: US (occurrence: US)
  Receive Date: 20250610
  Receipt Date: 20250805
  Transmission Date: 20251020
  Serious: Yes (Hospitalization)
  Sender: VERTEX
  Company Number: US-VERTEX PHARMACEUTICALS-2025-009109

PATIENT
  Age: 62 Year
  Sex: Male

DRUGS (5)
  1. JOURNAVX [Suspect]
     Active Substance: SUZETRIGINE
     Indication: Pain
     Dosage: 2 TABLETS (50 MG) FOR LOADING DOSE, SINGLE
     Route: 048
     Dates: start: 20250601, end: 20250601
  2. CILOSTAZOL [Concomitant]
     Active Substance: CILOSTAZOL
     Indication: Peripheral vascular disorder
     Dates: start: 202506, end: 202506
  3. MORPHINE [Concomitant]
     Active Substance: MORPHINE
     Indication: Arthralgia
     Dates: start: 2025
  4. MORPHINE [Concomitant]
     Active Substance: MORPHINE
     Indication: Back pain
  5. LISINOPRIL [Concomitant]
     Active Substance: LISINOPRIL
     Dates: start: 2021

REACTIONS (4)
  - Lip swelling [Recovered/Resolved]
  - Swollen tongue [Recovered/Resolved]
  - Swelling face [Recovered/Resolved]
  - Dyspnoea [Recovered/Resolved]

NARRATIVE: CASE EVENT DATE: 20250601
